FAERS Safety Report 15469912 (Version 2)
Quarter: 2018Q4

REPORT INFORMATION
  Report Type: Spontaneous
  Country: DE (occurrence: DE)
  Receive Date: 20181005
  Receipt Date: 20181113
  Transmission Date: 20190205
  Serious: Yes (Other)
  Sender: FDA-Public Use
  Company Number: DE-ALEXION PHARMACEUTICALS INC.-A201812978

PATIENT
  Sex: Male

DRUGS (1)
  1. STRENSIQ [Suspect]
     Active Substance: ASFOTASE ALFA
     Indication: HYPOPHOSPHATASIA
     Dosage: UNK
     Route: 065
     Dates: start: 20180921

REACTIONS (5)
  - Somnolence [Recovering/Resolving]
  - Failure to thrive [Recovering/Resolving]
  - Drug ineffective [Recovering/Resolving]
  - Poor feeding infant [Recovering/Resolving]
  - Hypotonia [Recovering/Resolving]
